FAERS Safety Report 4293485-5 (Version None)
Quarter: 2004Q1

REPORT INFORMATION
  Report Type: 
  Country: None (occurrence: None)
  Receive Date: 20040212
  Receipt Date: 20030627
  Transmission Date: 20041129
  Serious: No
  Sender: FDA-Public Use
  Company Number: US-GLAXOSMITHKLINE-A0414346A

PATIENT
  Age: 63 Year
  Sex: Female

DRUGS (4)
  1. PAXIL [Suspect]
     Dosage: 10MG PER DAY
     Route: 048
     Dates: start: 20030617
  2. NORTRIPTYLINE HCL [Concomitant]
  3. VALIUM [Concomitant]
  4. LIPITOR [Concomitant]

REACTIONS (5)
  - HYPERHIDROSIS [None]
  - INSOMNIA [None]
  - NERVOUSNESS [None]
  - SOMNOLENCE [None]
  - STRESS SYMPTOMS [None]
